FAERS Safety Report 10218480 (Version 1)
Quarter: 2014Q2

REPORT INFORMATION
  Report Type: Spontaneous
  Country: US (occurrence: US)
  Receive Date: 20140605
  Receipt Date: 20140605
  Transmission Date: 20141212
  Serious: Yes (Hospitalization)
  Sender: FDA-Public Use
  Company Number: US-MYLANLABS-2014S1012613

PATIENT
  Age: 67 Year
  Sex: Male

DRUGS (4)
  1. AMIODARONE [Suspect]
     Indication: ATRIAL FLUTTER
     Route: 065
  2. AMIODARONE [Suspect]
     Indication: OFF LABEL USE
     Route: 065
  3. DABIGATRAN ETEXILATE [Concomitant]
     Indication: ATRIAL FLUTTER
     Route: 065
  4. FUROSEMIDE [Concomitant]
     Indication: INAPPROPRIATE ANTIDIURETIC HORMONE SECRETION
     Route: 065

REACTIONS (2)
  - Hyponatraemia [Recovered/Resolved]
  - Hypothyroidism [Recovering/Resolving]
